FAERS Safety Report 9424546 (Version 1)
Quarter: 2013Q3

REPORT INFORMATION
  Report Type: Spontaneous
  Country: US (occurrence: US)
  Receive Date: 20130725
  Receipt Date: 20130725
  Transmission Date: 20140515
  Serious: Yes (Other)
  Sender: FDA-Public Use
  Company Number: 001569683A

PATIENT
  Age: 18 Year
  Sex: Male

DRUGS (3)
  1. PROACTIV SOLUTION RENEWING CLEANSER [Suspect]
     Indication: ACNE
     Dosage: DERMAL
     Dates: start: 20130520, end: 20130702
  2. PROACTIV SOLUTION REPAIRING TREATMENT [Suspect]
     Indication: ACNE
     Dosage: DERMAL
     Dates: start: 20130520, end: 20130702
  3. PROACTIV SOLUTION DEEP CLEANSING WASH [Suspect]
     Indication: ACNE
     Dosage: DERMAL
     Dates: start: 20130520, end: 20130702

REACTIONS (2)
  - Cyst [None]
  - Staphylococcus test positive [None]
